FAERS Safety Report 8013643-3 (Version None)
Quarter: 2011Q4

REPORT INFORMATION
  Report Type: 
  Country: None (occurrence: None)
  Receive Date: 20111229
  Receipt Date: 20111227
  Transmission Date: 20120403
  Serious: Yes (Other)
  Sender: FDA-Public Use
  Company Number: US-PFIZER INC-2011314158

PATIENT

DRUGS (1)
  1. LIPITOR [Suspect]
     Dosage: 20 MG, AT BED TIME

REACTIONS (3)
  - CEREBROVASCULAR ACCIDENT [None]
  - ACTIVITIES OF DAILY LIVING IMPAIRED [None]
  - LOSS OF EMPLOYMENT [None]
